FAERS Safety Report 8910520 (Version 1)
Quarter: 2012Q4

REPORT INFORMATION
  Report Type: 
  Country: SD (occurrence: SD)
  Receive Date: 20121114
  Receipt Date: 20121114
  Transmission Date: 20130627
  Serious: Yes (Hospitalization)
  Sender: FDA-Public Use
  Company Number: SD-PFIZER INC-2012281579

PATIENT
  Age: 15 Year
  Sex: Female
  Weight: 58 kg

DRUGS (1)
  1. ZITHROMAX [Suspect]
     Indication: TRACHOMA
     Dosage: 4 doses, unknown dose, tablet, once
     Route: 048
     Dates: start: 20121101, end: 20121101

REACTIONS (6)
  - Convulsion [Recovered/Resolved]
  - Abdominal pain [Recovered/Resolved]
  - Dizziness [Recovered/Resolved]
  - Neck pain [Recovered/Resolved]
  - Headache [Recovered/Resolved]
  - Eye pain [Recovered/Resolved]
